FAERS Safety Report 9742537 (Version 2)
Quarter: 2013Q4

REPORT INFORMATION
  Report Type: Spontaneous
  Country: JP (occurrence: JP)
  Receive Date: 20131210
  Receipt Date: 20131218
  Transmission Date: 20140711
  Serious: Yes (Other)
  Sender: FDA-Public Use
  Company Number: PHHY2013JP144081

PATIENT
  Age: 82 Year
  Sex: Male

DRUGS (5)
  1. VOLTAREN [Suspect]
     Dosage: 25 MG, QD
     Route: 048
     Dates: start: 20130601, end: 20130610
  2. MUCOSTA [Suspect]
     Dosage: 100 MG, TID
     Route: 048
  3. NEUROTROPIN [Suspect]
     Dosage: 3 DF, QD
     Route: 048
  4. INTEBAN [Suspect]
     Dosage: UNK UKN, UNK
  5. MOHRUS [Suspect]
     Dosage: UNK UKN, UNK

REACTIONS (2)
  - Lung neoplasm malignant [Unknown]
  - Gastric ulcer [Unknown]
